FAERS Safety Report 6875964 (Version 6)
Quarter: 2014Q2

REPORT INFORMATION
  Report Type: Spontaneous
  Country: US (occurrence: None)
  Receive Date: 20081231
  Receipt Date: 20140402
  Transmission Date: 20141212
  Serious: Yes (Other)
  Sender: FDA-Public Use
  Company Number: POMP-1000441

PATIENT
  Age: 60 Year
  Sex: Male
  Weight: 120 kg

DRUGS (17)
  1. MYOZYME [Suspect]
     Indication: GLYCOGEN STORAGE DISEASE TYPE II
     Dosage: 20 MG/KG, Q2W, INTRAVENOUS
     Route: 042
     Dates: start: 20060926
  2. LORATADINE [Concomitant]
  3. METHYLSULFONYLMETHANE [Concomitant]
  4. DEXTROPROPOXYPHENE [Concomitant]
  5. NAPSILATE, PARACETAMOL [Concomitant]
  6. LEVOTHYROXINE SODIUM [Concomitant]
  7. PIROXICAM [Concomitant]
  8. CLONIDINE TRANSDERMAL SYSTEM [Concomitant]
  9. HYDROCHLOROTHIAZIDE [Concomitant]
  10. POTASSIUM CHLORIDE [Concomitant]
  11. OLMESARTAN MEDOXOMIL [Concomitant]
  12. LISINOPRIL [Concomitant]
  13. CALCIUM CARBONATE [Concomitant]
  14. RANITIDINE [Concomitant]
  15. PARACETAMOL [Concomitant]
  16. METHYLPREDNISOLONE (METHYLPREDNISOLONE) [Concomitant]
  17. NISOLDIPINE [Concomitant]

REACTIONS (20)
  - Dyspepsia [None]
  - Angioedema [None]
  - Infusion related reaction [None]
  - Blood pressure increased [None]
  - Arthralgia [None]
  - Muscular weakness [None]
  - Myalgia [None]
  - Fall [None]
  - Hypoaesthesia [None]
  - Paraesthesia [None]
  - Headache [None]
  - Chest discomfort [None]
  - Chills [None]
  - Tremor [None]
  - Muscle spasms [None]
  - Pruritus generalised [None]
  - Urticaria [None]
  - Rash [None]
  - Rash [None]
  - Blood immunoglobulin G increased [None]
